FAERS Safety Report 10595157 (Version 1)
Quarter: 2014Q4

REPORT INFORMATION
  Report Type: Spontaneous
  Country: US (occurrence: None)
  Receive Date: 20141118
  Receipt Date: 20141118
  Transmission Date: 20150529
  Serious: Yes (Other)
  Sender: FDA-Public Use
  Company Number: 2014SIG00009

PATIENT
  Age: 60 Year
  Sex: Female
  Weight: 66.2 kg

DRUGS (2)
  1. LIOTHYRONINE SODIUM. [Suspect]
     Active Substance: LIOTHYRONINE SODIUM
     Dosage: 5 U/G, 3X/DAY
     Dates: start: 2012
  2. HYDROCORTISONE (COMPOUNDED CAPSULES) [Concomitant]

REACTIONS (11)
  - Tongue pruritus [None]
  - Sensation of foreign body [None]
  - Oral pruritus [None]
  - Throat tightness [None]
  - Influenza like illness [None]
  - Sinus headache [None]
  - Incorrect route of drug administration [None]
  - Nausea [None]
  - Glossodynia [None]
  - Feeling abnormal [None]
  - Throat irritation [None]

NARRATIVE: CASE EVENT DATE: 201410
